FAERS Safety Report 14186068 (Version 1)
Quarter: 2017Q4

REPORT INFORMATION
  Report Type: Spontaneous
  Country: US (occurrence: US)
  Receive Date: 20171114
  Receipt Date: 20171114
  Transmission Date: 20180321
  Serious: Yes (Other)
  Sender: FDA-Public Use
  Company Number: US-009507513-1711USA003570

PATIENT
  Age: 66 Year
  Sex: Male

DRUGS (9)
  1. TACROLIMUS. [Concomitant]
     Active Substance: TACROLIMUS
  2. ATOVAQUONE. [Concomitant]
     Active Substance: ATOVAQUONE
  3. VALACYCLOVIR HYDROCHLORIDE. [Concomitant]
     Active Substance: VALACYCLOVIR HYDROCHLORIDE
  4. MEROPENEM. [Concomitant]
     Active Substance: MEROPENEM
     Indication: FEBRILE NEUTROPENIA
  5. NOXAFIL [Suspect]
     Active Substance: POSACONAZOLE
     Indication: FEBRILE NEUTROPENIA
     Route: 048
  6. BUDESONIDE. [Concomitant]
     Active Substance: BUDESONIDE
  7. VANCOMYCIN [Concomitant]
     Active Substance: VANCOMYCIN
     Indication: FEBRILE NEUTROPENIA
  8. FLUCONAZOLE. [Concomitant]
     Active Substance: FLUCONAZOLE
  9. DASATINIB. [Concomitant]
     Active Substance: DASATINIB

REACTIONS (1)
  - Hypokalaemia [Recovered/Resolved]
